FAERS Safety Report 16944242 (Version 1)
Quarter: 2019Q4

REPORT INFORMATION
  Report Type: Spontaneous
  Country: PL (occurrence: PL)
  Receive Date: 20191022
  Receipt Date: 20191022
  Transmission Date: 20200122
  Serious: Yes (Hospitalization, Other)
  Sender: FDA-Public Use
  Company Number: PL-ASTRAZENECA-2019SF48636

PATIENT
  Sex: Male

DRUGS (3)
  1. INHIBACE [Concomitant]
     Active Substance: CILAZAPRIL ANHYDROUS
  2. SYMBICORT [Suspect]
     Active Substance: BUDESONIDE\FORMOTEROL FUMARATE DIHYDRATE
     Dosage: UNKNOWN UNKNOWN
     Route: 055
  3. TERTENSIF [Concomitant]
     Active Substance: INDAPAMIDE

REACTIONS (6)
  - Blood glucose increased [Recovering/Resolving]
  - Muscle spasms [Recovering/Resolving]
  - Dizziness [Recovering/Resolving]
  - Femur fracture [Unknown]
  - Syncope [Recovering/Resolving]
  - Nausea [Recovering/Resolving]
